FAERS Safety Report 9674222 (Version 1)
Quarter: 2013Q4

REPORT INFORMATION
  Report Type: Spontaneous
  Country: HR (occurrence: HR)
  Receive Date: 20131107
  Receipt Date: 20131107
  Transmission Date: 20140711
  Serious: Yes (Other)
  Sender: FDA-Public Use
  Company Number: HR-PFIZER INC-2013314600

PATIENT
  Age: 68 Year
  Sex: Female

DRUGS (5)
  1. SOLU-MEDROL [Suspect]
     Indication: BACK PAIN
     Dosage: 40 MG, 1X/DAY
     Route: 030
     Dates: start: 20130909, end: 20130913
  2. STATEX [Suspect]
     Indication: ACUTE MYOCARDIAL INFARCTION
     Dosage: 40 MG, 1X/DAY
     Route: 048
     Dates: start: 20130909, end: 20130924
  3. TRIMETAZIDINE [Suspect]
     Indication: ACUTE MYOCARDIAL INFARCTION
     Dosage: 35 MG, 1X/DAY
     Route: 048
     Dates: start: 20130909, end: 20130924
  4. NAKLOFEN [Suspect]
     Indication: BACK PAIN
     Dosage: 75 MG, 1X/DAY
     Route: 030
     Dates: start: 20130909, end: 20130913
  5. PANTOPRAZOLE [Concomitant]
     Dosage: 40 MG, UNK
     Route: 048

REACTIONS (5)
  - Pharyngeal haemorrhage [Recovered/Resolved]
  - Odynophagia [Recovered/Resolved]
  - Pharyngeal ulceration [Recovered/Resolved]
  - Confusional state [Recovered/Resolved]
  - Disorientation [Recovered/Resolved]
